FAERS Safety Report 13188474 (Version 3)
Quarter: 2017Q1

REPORT INFORMATION
  Report Type: Spontaneous
  Country: US (occurrence: US)
  Receive Date: 20170206
  Receipt Date: 20170301
  Transmission Date: 20170428
  Serious: Yes (Disabling, Other)
  Sender: FDA-Public Use
  Company Number: US-AMGEN-USASP2017015398

PATIENT
  Age: 69 Year
  Sex: Female

DRUGS (1)
  1. PROLIA [Suspect]
     Active Substance: DENOSUMAB
     Indication: OSTEOPOROSIS POSTMENOPAUSAL
     Dosage: UNK, UNK
     Route: 065
     Dates: start: 20170104

REACTIONS (19)
  - Hyperthyroidism [Unknown]
  - Back pain [Not Recovered/Not Resolved]
  - Abdominal pain [Unknown]
  - Bone pain [Not Recovered/Not Resolved]
  - Mobility decreased [Not Recovered/Not Resolved]
  - Muscle mass [Unknown]
  - Myalgia [Not Recovered/Not Resolved]
  - Hypersensitivity [Unknown]
  - Diarrhoea [Unknown]
  - Chronic myelomonocytic leukaemia [Unknown]
  - Malaise [Unknown]
  - Arthralgia [Not Recovered/Not Resolved]
  - Musculoskeletal chest pain [Unknown]
  - Constipation [Unknown]
  - Cough [Unknown]
  - Rhinorrhoea [Unknown]
  - Rheumatoid arthritis [Unknown]
  - Pain [Not Recovered/Not Resolved]
  - White blood cell count decreased [Not Recovered/Not Resolved]

NARRATIVE: CASE EVENT DATE: 201701
